FAERS Safety Report 19082275 (Version 1)
Quarter: 2021Q2

REPORT INFORMATION
  Report Type: Spontaneous
  Country: US (occurrence: US)
  Receive Date: 20210401
  Receipt Date: 20210401
  Transmission Date: 20210717
  Serious: No
  Sender: FDA-Public Use
  Company Number: US-SPARK THERAPEUTICS, INC.-US-SPK-20-00092

PATIENT
  Age: 20 Year
  Sex: Male

DRUGS (4)
  1. LUXTURNA [Suspect]
     Active Substance: VORETIGENE NEPARVOVEC-RZYL
     Indication: RPE65 GENE MUTATION
     Dosage: LEFT EYE
     Dates: start: 20200630, end: 20200630
  2. LUXTURNA [Suspect]
     Active Substance: VORETIGENE NEPARVOVEC-RZYL
     Indication: LEBER^S CONGENITAL AMAUROSIS
     Dosage: RIGHT EYE
     Route: 031
     Dates: start: 20200623, end: 20200623
  3. LUXTURNA [Suspect]
     Active Substance: VORETIGENE NEPARVOVEC-RZYL
     Indication: RPE65 GENE MUTATION
     Dosage: LEFT EYE
     Dates: start: 20200630, end: 20200630
  4. LUXTURNA [Suspect]
     Active Substance: VORETIGENE NEPARVOVEC-RZYL
     Indication: LEBER^S CONGENITAL AMAUROSIS
     Dosage: RIGHT EYE
     Dates: start: 20200623, end: 20200623

REACTIONS (1)
  - Suture related complication [Recovered/Resolved]

NARRATIVE: CASE EVENT DATE: 20200706
